FAERS Safety Report 5251993-4 (Version None)
Quarter: 2007Q1

REPORT INFORMATION
  Report Type: 
  Country: None (occurrence: None)
  Receive Date: 20070223
  Receipt Date: 20070209
  Transmission Date: 20070707
  Serious: Yes (Other)
  Sender: FDA-Public Use
  Company Number: 010346

PATIENT
  Age: 63 Year
  Sex: Male
  Weight: 74.8 kg

DRUGS (20)
  1. ETHAMBUTOL HYDROCHLORIDE [Suspect]
     Indication: LUNG INFECTION
     Dosage: 1 TABLET, QID, ORAL
     Route: 048
     Dates: start: 20060530, end: 20060701
  2. ETHAMBUTOL HYDROCHLORIDE [Suspect]
     Indication: MYCOBACTERIAL INFECTION
     Dosage: 1 TABLET, QID, ORAL
     Route: 048
     Dates: start: 20060530, end: 20060701
  3. ETHAMBUTOL HYDROCHLORIDE [Suspect]
     Indication: LUNG INFECTION
     Dosage: 1 TABLET, QID, ORAL
     Route: 048
     Dates: start: 20060701, end: 20061118
  4. ETHAMBUTOL HYDROCHLORIDE [Suspect]
     Indication: MYCOBACTERIAL INFECTION
     Dosage: 1 TABLET, QID, ORAL
     Route: 048
     Dates: start: 20060701, end: 20061118
  5. RIFAMPICIN [Suspect]
     Indication: LUNG INFECTION
     Dosage: ORAL
     Route: 048
  6. RIFAMPICIN [Suspect]
     Indication: MYCOBACTERIAL INFECTION
     Dosage: ORAL
     Route: 048
  7. ERYTHROMYCIN [Concomitant]
  8. NEURONTIN [Concomitant]
  9. ALBUTEROL [Concomitant]
  10. ADVAIR DISKUS 100/50 [Concomitant]
  11. SINGULAIR [Concomitant]
  12. SPIRIVA [Concomitant]
  13. MALATONIN (MELATONIN) [Concomitant]
  14. MYCELEX [Concomitant]
  15. PREDNISONE TAB [Concomitant]
  16. CALCIUM (CALCIUM) [Concomitant]
  17. GINKGO (GINKGO BILOBA) [Concomitant]
  18. SAW PALMETTO (SERENOA REPENS) [Concomitant]
  19. CARBIDOPA AND LEVODOPA [Concomitant]
  20. CLARITHROMYCIN [Concomitant]

REACTIONS (3)
  - IDIOSYNCRATIC DRUG REACTION [None]
  - OPTIC NEURITIS [None]
  - OPTIC NEUROPATHY [None]
